FAERS Safety Report 5193973-3 (Version None)
Quarter: 2006Q4

REPORT INFORMATION
  Report Type: 
  Country: None (occurrence: None)
  Receive Date: 20061228
  Receipt Date: 20050525
  Transmission Date: 20070319
  Serious: No
  Sender: FDA-Public Use
  Company Number: US-GLAXOSMITHKLINE-A0560132A

PATIENT
  Age: 80 Year
  Sex: Female

DRUGS (5)
  1. FLOVENT [Suspect]
     Indication: ASTHMA
     Dosage: 110MCG TWICE PER DAY
     Route: 055
     Dates: start: 20050515
  2. INSULIN [Concomitant]
  3. METHYLDOPA [Concomitant]
  4. LOPRESSOR [Concomitant]
  5. SUDAFED 12 HOUR [Concomitant]

REACTIONS (4)
  - ALLERGIC SINUSITIS [None]
  - DYSPNOEA [None]
  - EAR DISORDER [None]
  - PHARMACEUTICAL PRODUCT COMPLAINT [None]
